FAERS Safety Report 13675552 (Version 1)
Quarter: 2017Q2

REPORT INFORMATION
  Report Type: Report from Study
  Country: US (occurrence: US)
  Receive Date: 20170621
  Receipt Date: 20170621
  Transmission Date: 20170830
  Serious: Yes (Hospitalization)
  Sender: FDA-Public Use
  Company Number: US-BAYER-2017-103807

PATIENT
  Age: 58 Year
  Sex: Male

DRUGS (1)
  1. NEXAVAR [Suspect]
     Active Substance: SORAFENIB
     Indication: LUNG CARCINOMA CELL TYPE UNSPECIFIED STAGE I
     Dosage: DAILY DOSE 800 MG
     Route: 048
     Dates: start: 20170427

REACTIONS (6)
  - Fatigue [Not Recovered/Not Resolved]
  - Off label use [None]
  - Rash [Not Recovered/Not Resolved]
  - Product use in unapproved indication [None]
  - Abdominal pain upper [Not Recovered/Not Resolved]
  - Blood count abnormal [None]

NARRATIVE: CASE EVENT DATE: 2017
